FAERS Safety Report 6655911-3 (Version None)
Quarter: 2010Q1

REPORT INFORMATION
  Report Type: 
  Country: None (occurrence: None)
  Receive Date: 20100326
  Receipt Date: 20100326
  Transmission Date: 20100710
  Serious: Yes (Disabling)
  Sender: FDA-Public Use
  Company Number: None

PATIENT
  Age: 40 Year
  Sex: Male
  Weight: 113.3993 kg

DRUGS (1)
  1. SEPTOCAINE [Suspect]
     Dosage: 3 CARPULES
     Dates: start: 20100209

REACTIONS (2)
  - ANAESTHETIC COMPLICATION [None]
  - HYPOAESTHESIA ORAL [None]
